FAERS Safety Report 10243217 (Version 2)
Quarter: 2014Q2

REPORT INFORMATION
  Report Type: Spontaneous
  Country: US (occurrence: None)
  Receive Date: 20140616
  Receipt Date: 20140623
  Transmission Date: 20141212
  Serious: Yes (Hospitalization)
  Sender: FDA-Public Use
  Company Number: UNT-2014-001795

PATIENT
  Age: 67 Year
  Sex: Female
  Weight: 61.7 kg

DRUGS (4)
  1. REMODULIN [Suspect]
     Indication: PULMONARY ARTERIAL HYPERTENSION
     Dosage: CONTINUING
     Route: 042
     Dates: start: 20050120
  2. TRACLEER /01587701/ (BOSENTAN) [Concomitant]
  3. REVATIO (SILDENAFIL CITRATE) [Concomitant]
  4. COUMADIN /00014802/ (WARFARIN SODIUM) [Concomitant]

REACTIONS (2)
  - Body temperature increased [None]
  - Sepsis [None]
